FAERS Safety Report 19467445 (Version 1)
Quarter: 2021Q2

REPORT INFORMATION
  Report Type: Spontaneous
  Country: US (occurrence: US)
  Receive Date: 20210627
  Receipt Date: 20210627
  Transmission Date: 20210717
  Serious: Yes (Other)
  Sender: FDA-Public Use
  Company Number: None

PATIENT
  Age: 54 Year
  Sex: Female
  Weight: 81 kg

DRUGS (3)
  1. CELEXA [Concomitant]
     Active Substance: CITALOPRAM HYDROBROMIDE
  2. GENERIC NICOTINE GUM [Suspect]
     Active Substance: NICOTINE
     Indication: TOBACCO ABUSE
  3. BP MEDICATION [Concomitant]

REACTIONS (2)
  - Rash [None]
  - Erythema [None]
